FAERS Safety Report 9529385 (Version 1)
Quarter: 2013Q1

REPORT INFORMATION
  Report Type: Spontaneous
  Country: US (occurrence: None)
  Receive Date: 20130318
  Receipt Date: 20130318
  Transmission Date: 20140127
  Serious: Yes (Other)
  Sender: FDA-Public Use
  Company Number: 1212USA007994

PATIENT
  Age: 57 Year
  Sex: Female

DRUGS (3)
  1. PEGINTRON [Suspect]
     Indication: HEPATITIS C
     Route: 058
     Dates: start: 20121207
  2. TELAPREVIR [Suspect]
     Indication: HEPATITIS C
     Dates: start: 20121207
  3. RIBAPAK [Suspect]
     Indication: HEPATITIS C
     Dates: start: 20121207

REACTIONS (17)
  - Suicidal ideation [None]
  - Tongue disorder [None]
  - Balance disorder [None]
  - Insomnia [None]
  - Fatigue [None]
  - Pruritus [None]
  - Dry skin [None]
  - Pruritus [None]
  - Breast disorder female [None]
  - Decreased appetite [None]
  - Nausea [None]
  - Haemoglobin decreased [None]
  - Haemoglobin decreased [None]
  - Rash [None]
  - Mental disorder [None]
  - Nervous system disorder [None]
  - Fatigue [None]
